FAERS Safety Report 7731905-1 (Version None)
Quarter: 2011Q3

REPORT INFORMATION
  Report Type: 
  Country: None (occurrence: None)
  Receive Date: 20110906
  Receipt Date: 20110713
  Transmission Date: 20111222
  Serious: No
  Sender: FDA-Public Use
  Company Number: US-AMGEN-USASP2011035568

PATIENT
  Sex: Female

DRUGS (8)
  1. ABILIFY [Concomitant]
     Dosage: UNK
  2. SYNTHROID [Concomitant]
  3. PROLIA [Suspect]
     Indication: OSTEOPOROSIS POSTMENOPAUSAL
     Dosage: UNK
     Dates: start: 20110101
  4. MAGNESIUM CITRATE [Concomitant]
  5. PROLIA [Suspect]
  6. CALCIUM WITH VITAMIN D             /00944201/ [Concomitant]
  7. CENTRUM                            /00554501/ [Concomitant]
  8. BENZTROPINE MESYLATE [Concomitant]

REACTIONS (5)
  - PRURITUS [None]
  - GASTROOESOPHAGEAL REFLUX DISEASE [None]
  - LICHENOID KERATOSIS [None]
  - MALAISE [None]
  - ERYTHEMA [None]
